FAERS Safety Report 6642974-4 (Version None)
Quarter: 2010Q1

REPORT INFORMATION
  Report Type: 
  Country: None (occurrence: None)
  Receive Date: 20100319
  Receipt Date: 20100310
  Transmission Date: 20100710
  Serious: Yes (Other)
  Sender: FDA-Public Use
  Company Number: A0811594A

PATIENT
  Age: 64 Year
  Sex: Female
  Weight: 45.5 kg

DRUGS (5)
  1. ZANTAC [Suspect]
     Dosage: 150MG TWICE PER DAY
     Route: 048
     Dates: start: 19970101
  2. SINGULAIR [Concomitant]
  3. ZYRTEC [Concomitant]
  4. ASPIRIN [Concomitant]
  5. VALIUM [Concomitant]

REACTIONS (6)
  - BRONCHITIS [None]
  - CEREBROVASCULAR ACCIDENT [None]
  - MUSCLE SPASMS [None]
  - PNEUMONIA [None]
  - VIRAL INFECTION [None]
  - WEIGHT DECREASED [None]
